FAERS Safety Report 8327267-1 (Version None)
Quarter: 2012Q2

REPORT INFORMATION
  Report Type: 
  Country: None (occurrence: None)
  Receive Date: 20120502
  Receipt Date: 20120423
  Transmission Date: 20120825
  Serious: Yes (Hospitalization)
  Sender: FDA-Public Use
  Company Number: US-BRISTOL-MYERS SQUIBB COMPANY-16515132

PATIENT
  Age: 62 Year
  Sex: Female

DRUGS (7)
  1. ALPRAZOLAM [Concomitant]
  2. FOLIC ACID [Concomitant]
  3. ASPIRIN [Concomitant]
  4. ORENCIA [Suspect]
     Indication: RHEUMATOID ARTHRITIS
     Dosage: RECEIVED 3 DOSES
     Route: 058
  5. MULTI-VITAMINS [Concomitant]
  6. CALCIUM [Concomitant]
  7. METHOTREXATE [Concomitant]

REACTIONS (1)
  - MENINGITIS ASEPTIC [None]
